FAERS Safety Report 24721070 (Version 1)
Quarter: 2024Q4

REPORT INFORMATION
  Report Type: Spontaneous
  Country: ES (occurrence: ES)
  Receive Date: 20241211
  Receipt Date: 20241211
  Transmission Date: 20250114
  Serious: Yes (Life-Threatening, Other)
  Sender: MERCK
  Company Number: None

PATIENT
  Age: 71 Year
  Sex: Male

DRUGS (4)
  1. METFORMIN HYDROCHLORIDE\SITAGLIPTIN PHOSPHATE [Suspect]
     Active Substance: METFORMIN HYDROCHLORIDE\SITAGLIPTIN PHOSPHATE
     Indication: Diabetes mellitus
     Dosage: COMP C/12 H
     Route: 048
     Dates: start: 20160530, end: 20240829
  2. VALSARTAN/HIDROCLOROTIAZIDA KERN PHARMA [Concomitant]
     Indication: Essential hypertension
     Dosage: 320.0 MG OF
     Route: 048
     Dates: start: 20160531
  3. OMEPRAZOLE [Concomitant]
     Active Substance: OMEPRAZOLE
     Indication: Product used for unknown indication
     Dosage: 20.0 MG A-DE
     Route: 048
     Dates: start: 20130115
  4. METAMIZOLE MAGNESIUM [Concomitant]
     Active Substance: METAMIZOLE MAGNESIUM
     Indication: Headache
     Dosage: 575.0 MG/24 H
     Route: 048
     Dates: start: 20141218

REACTIONS (2)
  - Jaundice [Recovered/Resolved]
  - Hepatocellular injury [Recovered/Resolved]

NARRATIVE: CASE EVENT DATE: 20240821
